FAERS Safety Report 23010336 (Version 2)
Quarter: 2024Q1

REPORT INFORMATION
  Report Type: Spontaneous
  Country: BR (occurrence: BR)
  Receive Date: 20230929
  Receipt Date: 20240305
  Transmission Date: 20240410
  Serious: Yes (Other)
  Sender: FDA-Public Use
  Company Number: BR-OPELLA-2023OHG007244

PATIENT
  Age: 56 Year
  Sex: Male
  Weight: 90 kg

DRUGS (3)
  1. ALLEGRA-D 24 HOUR [Suspect]
     Active Substance: FEXOFENADINE HYDROCHLORIDE\PSEUDOEPHEDRINE HYDROCHLORIDE
     Indication: Sinusitis
     Route: 048
     Dates: start: 20230905, end: 20230906
  2. ALUPORINOL [Concomitant]
     Indication: Blood uric acid
     Route: 048
  3. INDAPAMIDE [Concomitant]
     Active Substance: INDAPAMIDE
     Dosage: 3 TIMES NA WEEK
     Route: 048

REACTIONS (4)
  - Urinary retention [Not Recovered/Not Resolved]
  - Insomnia [Not Recovered/Not Resolved]
  - Dysuria [Not Recovered/Not Resolved]
  - Product use in unapproved indication [Unknown]
